FAERS Safety Report 8540381-0 (Version None)
Quarter: 2012Q3

REPORT INFORMATION
  Report Type: 
  Country: None (occurrence: None)
  Receive Date: 20120726
  Receipt Date: 20110915
  Transmission Date: 20120928
  Serious: No
  Sender: FDA-Public Use
  Company Number: US-ASTRAZENECA-2010SE60576

PATIENT
  Age: 34 Year
  Sex: Female
  Weight: 52.2 kg

DRUGS (6)
  1. TRAZODONE HCL [Concomitant]
  2. WELLBUTRIN [Concomitant]
  3. LORAZEPAM [Concomitant]
  4. TRIAZOLAM [Concomitant]
  5. MELATONIN [Concomitant]
  6. SEROQUEL [Suspect]
     Indication: BIPOLAR DISORDER
     Route: 048
     Dates: start: 20080101

REACTIONS (5)
  - AFFECTIVE DISORDER [None]
  - INSOMNIA [None]
  - DRUG PRESCRIBING ERROR [None]
  - SEDATION [None]
  - WEIGHT INCREASED [None]
